FAERS Safety Report 5979576-9 (Version None)
Quarter: 2008Q4

REPORT INFORMATION
  Report Type: 
  Country: None (occurrence: None)
  Receive Date: 20081128
  Receipt Date: 20081110
  Transmission Date: 20090506
  Serious: Yes (Hospitalization)
  Sender: FDA-Public Use
  Company Number: DSA_32671_2008

PATIENT
  Sex: Female

DRUGS (6)
  1. LORAZEPAM [Suspect]
     Indication: DRUG USE FOR UNKNOWN INDICATION
     Dosage: (10 MG QD ORAL)
     Route: 048
     Dates: start: 20080710, end: 20080720
  2. ETUMINE (ETUMINE - CLOTIAPINE) (NOT SPECIFIED) [Suspect]
     Indication: DRUG USE FOR UNKNOWN INDICATION
     Dosage: (80 MG QD ORAL), (40 MG QD )
     Route: 048
     Dates: start: 20080708, end: 20080709
  3. ETUMINE (ETUMINE - CLOTIAPINE) (NOT SPECIFIED) [Suspect]
     Indication: DRUG USE FOR UNKNOWN INDICATION
     Dosage: (80 MG QD ORAL), (40 MG QD )
     Route: 048
     Dates: start: 20080710, end: 20080717
  4. ANAFRANIL [Concomitant]
  5. LIPITOR [Concomitant]
  6. ZYPREXA [Concomitant]

REACTIONS (6)
  - DERMATITIS ALLERGIC [None]
  - RASH ERYTHEMATOUS [None]
  - RASH GENERALISED [None]
  - RASH MACULAR [None]
  - RASH PRURITIC [None]
  - SLEEP DISORDER [None]
